FAERS Safety Report 8846157 (Version 2)
Quarter: 2013Q2

REPORT INFORMATION
  Report Type: Report from Study
  Country: GB (occurrence: GB)
  Receive Date: 20121017
  Receipt Date: 20130423
  Transmission Date: 20140414
  Serious: Yes (Other)
  Sender: FDA-Public Use
  Company Number: PHHO2012GB014879

PATIENT
  Sex: 0

DRUGS (1)
  1. ZOLEDRONATE [Suspect]
     Indication: METASTASES TO BONE
     Dosage: 3.3 MG, UNK
     Route: 042
     Dates: start: 20040817, end: 20090728

REACTIONS (1)
  - Osteonecrosis of jaw [Not Recovered/Not Resolved]
